FAERS Safety Report 9164490 (Version 1)
Quarter: 2013Q1

REPORT INFORMATION
  Report Type: Spontaneous
  Country: PL (occurrence: None)
  Receive Date: 20130131
  Receipt Date: 20130131
  Transmission Date: 20140127
  Serious: No
  Sender: FDA-Public Use
  Company Number: AUR-APL-2013-01031

PATIENT
  Age: 37 Year
  Sex: Female

DRUGS (1)
  1. CEFUROXIME [Suspect]
     Indication: SINUSITIS
     Dosage: 1000MG (500 MG, 2 IN 1 D), ORAL
     Route: 048

REACTIONS (3)
  - Linear IgA disease [None]
  - Dermatitis bullous [None]
  - Pruritus [None]
